FAERS Safety Report 6956895-0 (Version None)
Quarter: 2010Q3

REPORT INFORMATION
  Report Type: 
  Country: None (occurrence: None)
  Receive Date: 20100830
  Receipt Date: 20100628
  Transmission Date: 20110219
  Serious: No
  Sender: FDA-Public Use
  Company Number: US-ALLERGAN-1008399US

PATIENT
  Sex: Male

DRUGS (1)
  1. SANCTURA XR [Suspect]
     Indication: MICTURITION URGENCY
     Dosage: 60 MG, QAM
     Route: 048
     Dates: start: 20100625, end: 20100625

REACTIONS (1)
  - DIARRHOEA [None]
